FAERS Safety Report 22637668 (Version 2)
Quarter: 2023Q2

REPORT INFORMATION
  Report Type: Spontaneous
  Country: CN (occurrence: CN)
  Receive Date: 20230626
  Receipt Date: 20230629
  Transmission Date: 20230722
  Serious: Yes (Hospitalization, Other)
  Sender: FDA-Public Use
  Company Number: CN-009507513-2306CHN009738

PATIENT
  Age: 58 Year
  Sex: Female
  Weight: 53 kg

DRUGS (8)
  1. KEYTRUDA [Suspect]
     Active Substance: PEMBROLIZUMAB
     Indication: Lung neoplasm malignant
     Dosage: 100 MG, ONCE
     Route: 041
     Dates: start: 20210128, end: 20210128
  2. PEMETREXED DISODIUM [Suspect]
     Active Substance: PEMETREXED DISODIUM
     Indication: Lung neoplasm malignant
     Dosage: 750 MG, ONCE
     Route: 041
     Dates: start: 20210128, end: 20210128
  3. CALCIUM GLUCONATE [Suspect]
     Active Substance: CALCIUM GLUCONATE
     Indication: Antiallergic therapy
     Dosage: 10 MILLILITER, QD
     Route: 042
     Dates: start: 20210213
  4. VITAMIN C [Suspect]
     Active Substance: ASCORBIC ACID
     Indication: Antiallergic therapy
     Dosage: 1 GRAM, QD
     Route: 042
     Dates: start: 20210213
  5. CHLORPHENIRAMINE MALEATE [Suspect]
     Active Substance: CHLORPHENIRAMINE MALEATE
     Indication: Antiallergic therapy
     Dosage: 10 MILLIGRAM, ONCE
     Route: 030
     Dates: start: 20210213
  6. EBASTINE [Suspect]
     Active Substance: EBASTINE
     Indication: Antiallergic therapy
     Dosage: 10 MILLIGRAM, QD
     Route: 048
     Dates: start: 20210213
  7. METHYLPREDNISOLONE SODIUM SUCCINATE [Suspect]
     Active Substance: METHYLPREDNISOLONE SODIUM SUCCINATE
     Indication: Inflammation
     Dosage: 40 MILLIGRAM, Q12H
     Route: 042
     Dates: start: 20210216, end: 20210217
  8. SODIUM CHLORIDE [Concomitant]
     Active Substance: SODIUM CHLORIDE
     Indication: Medication dilution
     Dosage: 100 ML, ONCE
     Route: 041
     Dates: start: 20210128, end: 20210128

REACTIONS (6)
  - Drug eruption [Recovering/Resolving]
  - Erythema multiforme [Recovering/Resolving]
  - Blood calcium decreased [Unknown]
  - Anorectal discomfort [Unknown]
  - Drug ineffective [Unknown]
  - Underdose [Unknown]

NARRATIVE: CASE EVENT DATE: 20210128
